FAERS Safety Report 13290184 (Version 1)
Quarter: 2017Q1

REPORT INFORMATION
  Report Type: Spontaneous
  Country: US (occurrence: US)
  Receive Date: 20170302
  Receipt Date: 20170302
  Transmission Date: 20170428
  Serious: No
  Sender: FDA-Public Use
  Company Number: US-GLAXOSMITHKLINE-US2017028414

PATIENT
  Age: 35 Year
  Sex: Female

DRUGS (1)
  1. NICODERM CQ [Suspect]
     Active Substance: NICOTINE
     Indication: SMOKING CESSATION THERAPY
     Dosage: 21 MG, SINGLE, USED ONCE
     Route: 062
     Dates: start: 20170225, end: 20170225

REACTIONS (2)
  - Malaise [Unknown]
  - Euphoric mood [Unknown]

NARRATIVE: CASE EVENT DATE: 20170225
